FAERS Safety Report 8444987-9 (Version None)
Quarter: 2012Q2

REPORT INFORMATION
  Report Type: 
  Country: None (occurrence: None)
  Receive Date: 20120611
  Receipt Date: 20120601
  Transmission Date: 20120825
  Serious: Yes (Death)
  Sender: FDA-Public Use
  Company Number: DSA_57657_2012

PATIENT
  Sex: Male

DRUGS (1)
  1. XENAZINE [Suspect]
     Indication: HUNTINGTON'S DISEASE
     Dosage: (1 1/2 TABLETS THREE TIMES DAILY ORAL)
     Route: 048
     Dates: start: 20090601

REACTIONS (3)
  - HEAD INJURY [None]
  - FALL [None]
  - CEREBRAL HAEMORRHAGE [None]
